FAERS Safety Report 7995690-0 (Version None)
Quarter: 2011Q4

REPORT INFORMATION
  Report Type: 
  Country: None (occurrence: None)
  Receive Date: 20111220
  Receipt Date: 20111212
  Transmission Date: 20120403
  Serious: Yes (Hospitalization)
  Sender: FDA-Public Use
  Company Number: JP-EISAI INC-E7389-01698-SPO-JP

PATIENT
  Sex: Female
  Weight: 55 kg

DRUGS (7)
  1. HALAVEN [Suspect]
     Indication: METASTASES TO LIVER
  2. HALAVEN [Suspect]
     Indication: METASTASES TO KIDNEY
  3. HALAVEN [Suspect]
     Indication: BREAST CANCER RECURRENT
     Route: 042
     Dates: start: 20111019, end: 20111019
  4. HALAVEN [Suspect]
     Indication: METASTASES TO MUSCLE
  5. KYTRIL [Concomitant]
     Indication: NAUSEA
     Dates: start: 20111019
  6. ASPARA POTASSIUM [Concomitant]
     Route: 048
  7. MAGNESIUM SULFATE [Concomitant]
     Route: 048

REACTIONS (4)
  - STOMATITIS [None]
  - FEBRILE NEUTROPENIA [None]
  - LEUKOPENIA [None]
  - PYREXIA [None]
